FAERS Safety Report 22772596 (Version 5)
Quarter: 2023Q4

REPORT INFORMATION
  Report Type: Spontaneous
  Country: JP (occurrence: None)
  Receive Date: 20230801
  Receipt Date: 20231221
  Transmission Date: 20240110
  Serious: Yes (Disabling, Other)
  Sender: FDA-Public Use
  Company Number: 2023A172053

PATIENT
  Age: 72 Year
  Sex: Male
  Weight: 42 kg

DRUGS (12)
  1. ONDEXXYA [Suspect]
     Active Substance: ANDEXANET ALFA
     Indication: Cerebral haemorrhage
     Dosage: 5 VIALS880.0MG UNKNOWN
     Route: 041
     Dates: start: 20230719, end: 20230719
  2. ONDEXXYA [Suspect]
     Active Substance: ANDEXANET ALFA
     Indication: Thalamus haemorrhage
     Dosage: 5 VIALS880.0MG UNKNOWN
     Route: 041
     Dates: start: 20230719, end: 20230719
  3. LEVETIRACETAM [Suspect]
     Active Substance: LEVETIRACETAM
     Indication: Thalamus haemorrhage
     Route: 050
     Dates: start: 20230719
  4. LEVETIRACETAM [Suspect]
     Active Substance: LEVETIRACETAM
     Indication: Thalamus haemorrhage
     Route: 050
     Dates: start: 20230721
  5. ELIQUIS [Concomitant]
     Active Substance: APIXABAN
     Indication: Atrial fibrillation
     Dosage: DOSE UNKNOWN
  6. ELIQUIS [Concomitant]
     Active Substance: APIXABAN
     Indication: Atrial fibrillation
     Route: 050
     Dates: start: 20230726
  7. CARBOPLATIN [Concomitant]
     Active Substance: CARBOPLATIN
     Indication: Thalamus haemorrhage
     Dosage: 1 G
     Route: 050
     Dates: start: 20230721
  8. LANSOPRAZOLE [Concomitant]
     Active Substance: LANSOPRAZOLE
     Indication: Thalamus haemorrhage
     Route: 050
     Dates: start: 20230721
  9. AZILSARTAN KAMEDOXOMIL [Concomitant]
     Active Substance: AZILSARTAN KAMEDOXOMIL
     Indication: Thalamus haemorrhage
     Route: 050
     Dates: start: 20230725
  10. PANTETHINE [Concomitant]
     Active Substance: PANTETHINE
     Indication: Thalamus haemorrhage
     Dosage: 1 G
     Route: 050
     Dates: start: 20230725
  11. BIO-THREE [Concomitant]
     Active Substance: HERBALS
     Indication: Thalamus haemorrhage
     Dosage: 1 G
     Route: 050
     Dates: start: 20230725
  12. CARBOCYSTEINE [Concomitant]
     Active Substance: CARBOCYSTEINE
     Indication: Thalamus haemorrhage
     Route: 050
     Dates: start: 20230721

REACTIONS (5)
  - Cerebral infarction [Recovered/Resolved with Sequelae]
  - Pneumonia aspiration [Unknown]
  - Embolic stroke [Recovered/Resolved with Sequelae]
  - Hydrocephalus [Unknown]
  - Hypercoagulation [Unknown]

NARRATIVE: CASE EVENT DATE: 20230101
